FAERS Safety Report 24818652 (Version 1)
Quarter: 2025Q1

REPORT INFORMATION
  Report Type: Spontaneous
  Country: US (occurrence: None)
  Receive Date: 20250107
  Receipt Date: 20250107
  Transmission Date: 20250409
  Serious: Yes (Death)
  Sender: FDA-CTU
  Company Number: None

PATIENT
  Age: 58 Year
  Sex: Male

DRUGS (17)
  1. TACROLIMUS [Suspect]
     Active Substance: TACROLIMUS
     Indication: Renal transplant
     Dosage: 5MG DAILY ORAL ?
     Route: 048
     Dates: start: 20240122, end: 20241118
  2. MYCOPHENOLIC ACID [Suspect]
     Active Substance: MYCOPHENOLIC ACID
     Indication: Renal transplant
     Dosage: 540MG BID ORAL
     Route: 048
     Dates: start: 20240216, end: 20241118
  3. ASPIRIN [Concomitant]
     Active Substance: ASPIRIN
  4. ATORVASTATIN [Concomitant]
     Active Substance: ATORVASTATIN
  5. B-D Nano 2nd needles 32Gx4MM [Concomitant]
  6. Cincalcet [Concomitant]
  7. FUROSEMIDE [Concomitant]
     Active Substance: FUROSEMIDE
  8. HYDROXYZINE [Concomitant]
     Active Substance: HYDROXYZINE HYDROCHLORIDE
  9. LANSOPRAZOLE [Concomitant]
     Active Substance: LANSOPRAZOLE
  10. LANTUS [Concomitant]
     Active Substance: INSULIN GLARGINE
  11. METOPROLOL TARTRATE [Concomitant]
     Active Substance: METOPROLOL TARTRATE
  12. PREDNISONE [Concomitant]
     Active Substance: PREDNISONE
  13. ROSUVASTATIN [Concomitant]
     Active Substance: ROSUVASTATIN
  14. SENNA [Concomitant]
     Active Substance: SENNOSIDES
  15. SEVELAMER [Concomitant]
     Active Substance: SEVELAMER
  16. VALGANCICLOVIR [Concomitant]
     Active Substance: VALGANCICLOVIR
  17. WARFARIN [Concomitant]
     Active Substance: WARFARIN

REACTIONS (3)
  - Endocarditis staphylococcal [None]
  - Aortic valve stenosis [None]
  - Shock [None]

NARRATIVE: CASE EVENT DATE: 20241118
